FAERS Safety Report 5371454-1 (Version None)
Quarter: 2007Q2

REPORT INFORMATION
  Report Type: 
  Country: None (occurrence: None)
  Receive Date: 20070622
  Receipt Date: 20070612
  Transmission Date: 20071010
  Serious: Yes (Hospitalization, Other)
  Sender: FDA-Public Use
  Company Number: 2007-01131

PATIENT
  Age: 73 Year
  Sex: Male
  Weight: 80.3 kg

DRUGS (16)
  1. VELCADE [Suspect]
     Indication: MULTIPLE MYELOMA
     Dosage: 1.30 MG/M2, IV BOLUS
     Route: 040
     Dates: start: 20070305, end: 20070315
  2. DOXIL [Concomitant]
  3. DECADRON [Concomitant]
  4. ARANESP [Concomitant]
  5. ALOXI (AMOXICILLIN TRIHYDRATE) [Concomitant]
  6. SODIUM CHLORIDE [Concomitant]
  7. ZOMETA [Concomitant]
  8. DARVOCET-N (PARACETAMOL, DEXTROPROPOXYPHENE NAPSILATE) [Concomitant]
  9. CALCIUM (CALCIUM) [Concomitant]
  10. ASPIRIN [Concomitant]
  11. NEXIUM [Concomitant]
  12. COLACE (DOCUSATE SODIUM) [Concomitant]
  13. SENOKOT [Concomitant]
  14. AMARYL [Concomitant]
  15. ASCORBIC ACID [Concomitant]
  16. ZOLOFT [Concomitant]

REACTIONS (24)
  - ALANINE AMINOTRANSFERASE INCREASED [None]
  - ASPARTATE AMINOTRANSFERASE INCREASED [None]
  - ASTHENIA [None]
  - BLOOD ALKALINE PHOSPHATASE INCREASED [None]
  - BLOOD CALCIUM DECREASED [None]
  - BONE PAIN [None]
  - CONSTIPATION [None]
  - DEEP VEIN THROMBOSIS [None]
  - DIVERTICULUM [None]
  - EJECTION FRACTION DECREASED [None]
  - FATIGUE [None]
  - GASTROINTESTINAL HAEMORRHAGE [None]
  - HAEMATOCHEZIA [None]
  - HAEMATOCRIT DECREASED [None]
  - HAEMOGLOBIN DECREASED [None]
  - HERPES SIMPLEX [None]
  - HYPERGLYCAEMIA [None]
  - HYPERTENSION [None]
  - HYPOKALAEMIA [None]
  - INJECTION SITE REACTION [None]
  - LEUKOPENIA [None]
  - SKIN LESION [None]
  - VENTRICULAR HYPOKINESIA [None]
  - WEIGHT DECREASED [None]
